FAERS Safety Report 16206392 (Version 1)
Quarter: 2019Q2

REPORT INFORMATION
  Report Type: Report from Study
  Country: None (occurrence: US)
  Receive Date: 20190417
  Receipt Date: 20190417
  Transmission Date: 20190711
  Serious: Yes (Death)
  Sender: FDA-Public Use
  Company Number: US-ABBVIE-19S-163-2745760-00

PATIENT
  Age: 75 Year
  Sex: Female

DRUGS (2)
  1. IODINE 131 [Concomitant]
     Indication: PRODUCT USED FOR UNKNOWN INDICATION
  2. SYNTHROID [Suspect]
     Active Substance: LEVOTHYROXINE SODIUM
     Indication: THYROID CANCER
     Route: 048
     Dates: start: 2012

REACTIONS (4)
  - Thrombosis [Fatal]
  - Lymphoma [Fatal]
  - Neuropathy peripheral [Fatal]
  - Pneumonia [Fatal]

NARRATIVE: CASE EVENT DATE: 20190331
